FAERS Safety Report 6795806-8 (Version None)
Quarter: 2010Q2

REPORT INFORMATION
  Report Type: 
  Country: None (occurrence: None)
  Receive Date: 20100625
  Receipt Date: 20100617
  Transmission Date: 20101027
  Serious: Yes (Hospitalization)
  Sender: FDA-Public Use
  Company Number: A0789956A

PATIENT
  Age: 47 Year
  Sex: Male
  Weight: 122.7 kg

DRUGS (12)
  1. AVANDIA [Suspect]
     Dosage: 4MG PER DAY
     Route: 048
     Dates: start: 20040101, end: 20080411
  2. LASIX [Concomitant]
  3. AMLODIPINE [Concomitant]
  4. METFORMIN [Concomitant]
  5. GLIPIZIDE [Concomitant]
  6. HYZAAR [Concomitant]
  7. METOPROLOL XL [Concomitant]
  8. TERAZOSIN HCL [Concomitant]
  9. NEXIUM [Concomitant]
  10. NORVASC [Concomitant]
  11. INSULIN [Concomitant]
  12. HYTRIN [Concomitant]

REACTIONS (4)
  - CARDIAC DISORDER [None]
  - CARDIOVASCULAR DISORDER [None]
  - CEREBROVASCULAR ACCIDENT [None]
  - TRANSIENT ISCHAEMIC ATTACK [None]
